FAERS Safety Report 11740907 (Version 2)
Quarter: 2015Q4

REPORT INFORMATION
  Report Type: Spontaneous
  Country: CH (occurrence: CH)
  Receive Date: 20151115
  Receipt Date: 20151210
  Transmission Date: 20160304
  Serious: Yes (Other)
  Sender: FDA-Public Use
  Company Number: CH-TEVA-607595ISR

PATIENT
  Age: 7 Year
  Sex: Male

DRUGS (1)
  1. ACICLOVIR [Suspect]
     Active Substance: ACYCLOVIR
     Indication: ENCEPHALITIS
     Route: 065

REACTIONS (9)
  - Guillain-Barre syndrome [Unknown]
  - Areflexia [Not Recovered/Not Resolved]
  - Orthostatic intolerance [Recovered/Resolved]
  - Walking disability [Recovered/Resolved]
  - Hypertension [Unknown]
  - Muscular weakness [Unknown]
  - Tachycardia [Unknown]
  - Dysphagia [Unknown]
  - Irregular breathing [Unknown]
